FAERS Safety Report 4622673-0 (Version None)
Quarter: 2005Q1

REPORT INFORMATION
  Report Type: 
  Country: None (occurrence: None)
  Receive Date: 20050330
  Receipt Date: 20050131
  Transmission Date: 20050727
  Serious: No
  Sender: FDA-Public Use
  Company Number: US-BRISTOL-MYERS SQUIBB COMPANY-12844270

PATIENT
  Age: 29 Year
  Sex: Male
  Weight: 84 kg

DRUGS (4)
  1. REYATAZ [Suspect]
     Indication: HIV INFECTION
     Route: 048
  2. TRUVADA [Concomitant]
  3. NORVIR [Concomitant]
  4. CEFADROXIL [Concomitant]

REACTIONS (1)
  - OCULAR ICTERUS [None]
